FAERS Safety Report 14851311 (Version 4)
Quarter: 2018Q4

REPORT INFORMATION
  Report Type: Report from Study
  Country: None (occurrence: US)
  Receive Date: 20180507
  Receipt Date: 20181115
  Transmission Date: 20190204
  Serious: Yes (Other)
  Sender: FDA-Public Use
  Company Number: US-ABBVIE-18K-163-2344162-00

PATIENT
  Age: 57 Year
  Sex: Female
  Weight: 48.58 kg

DRUGS (1)
  1. HUMIRA [Suspect]
     Active Substance: ADALIMUMAB
     Indication: UVEITIS
     Route: 058
     Dates: start: 2017

REACTIONS (6)
  - Blindness unilateral [Recovering/Resolving]
  - Eye operation [Unknown]
  - Retinal scar [Unknown]
  - Uveitis [Recovered/Resolved]
  - Corneal disorder [Recovering/Resolving]
  - Intraocular pressure increased [Unknown]
